FAERS Safety Report 21477866 (Version 2)
Quarter: 2023Q4

REPORT INFORMATION
  Report Type: Spontaneous
  Country: TR (occurrence: TR)
  Receive Date: 20221019
  Receipt Date: 20231110
  Transmission Date: 20240109
  Serious: Yes (Hospitalization, Disabling, Other)
  Sender: FDA-Public Use
  Company Number: TR-009507513-2210TUR006171

PATIENT
  Age: 60 Year
  Sex: Male

DRUGS (3)
  1. PEMBROLIZUMAB [Suspect]
     Active Substance: PEMBROLIZUMAB
     Indication: Nodular melanoma
     Dosage: 4 CYCLES
     Dates: end: 201801
  2. IPILIMUMAB [Suspect]
     Active Substance: IPILIMUMAB
     Indication: Nodular melanoma
     Dosage: 1 MILLIGRAM/KILOGRAM, EVERY 3 WEEKS
     Route: 042
     Dates: start: 201802
  3. NIVOLUMAB [Suspect]
     Active Substance: NIVOLUMAB
     Indication: Nodular melanoma
     Dosage: 1 MILLIGRAM/KILOGRAM, Q3W
     Route: 042
     Dates: start: 201802

REACTIONS (1)
  - Myelitis transverse [Unknown]

NARRATIVE: CASE EVENT DATE: 20180307
